FAERS Safety Report 9839853 (Version 4)
Quarter: 2014Q1

REPORT INFORMATION
  Report Type: Spontaneous
  Country: IL (occurrence: IL)
  Receive Date: 20140124
  Receipt Date: 20140206
  Transmission Date: 20141002
  Serious: No
  Sender: FDA-Public Use
  Company Number: IL-009507513-1308ISR000290

PATIENT
  Age: 55 Year
  Sex: Female
  Weight: 92.5 kg

DRUGS (6)
  1. VICTRELIS [Suspect]
     Indication: HEPATITIS C
     Dosage: UNK UNK, TID
     Route: 048
     Dates: start: 20130727, end: 201401
  2. PEGASYS [Suspect]
     Indication: HEPATITIS C
     Dosage: 180
     Dates: start: 20130628
  3. COPEGUS [Suspect]
     Indication: HEPATITIS C
     Dosage: 1200
     Dates: start: 20130628
  4. OMEPRADEX [Concomitant]
  5. VALSARTAN [Concomitant]
  6. EXFORGE [Concomitant]

REACTIONS (30)
  - Local swelling [Unknown]
  - Mouth haemorrhage [Unknown]
  - Hepatic pain [Unknown]
  - Feeling abnormal [Unknown]
  - Feeling abnormal [Unknown]
  - Sleep disorder [Not Recovered/Not Resolved]
  - Nasopharyngitis [Not Recovered/Not Resolved]
  - Hepatic pain [Unknown]
  - Bronchitis [Not Recovered/Not Resolved]
  - Malaise [Unknown]
  - Bone pain [Unknown]
  - Malaise [Unknown]
  - Abdominal pain [Unknown]
  - Weight decreased [Unknown]
  - Pyrexia [Not Recovered/Not Resolved]
  - Asthenia [Unknown]
  - Dysgeusia [Unknown]
  - Decreased appetite [Unknown]
  - Vomiting [Unknown]
  - Asthenia [Unknown]
  - Nausea [Unknown]
  - Vomiting [Unknown]
  - Asthenia [Not Recovered/Not Resolved]
  - Vomiting [Unknown]
  - Vomiting [Not Recovered/Not Resolved]
  - Nausea [Unknown]
  - Nasopharyngitis [Unknown]
  - Immunosuppression [Unknown]
  - Drug ineffective [Unknown]
  - Hypertension [Unknown]
